FAERS Safety Report 5661487-X (Version None)
Quarter: 2008Q1

REPORT INFORMATION
  Report Type: 
  Country: None (occurrence: None)
  Receive Date: 20080312
  Receipt Date: 20080303
  Transmission Date: 20080703
  Serious: Yes (Other)
  Sender: FDA-Public Use
  Company Number: PHHY2008BR02627

PATIENT
  Age: 70 Year
  Sex: Male

DRUGS (2)
  1. DIOVAN [Suspect]
     Indication: HYPERTENSION
     Dosage: 160 MG, BID
     Route: 048
  2. EXFORGE [Suspect]
     Indication: HYPERTENSION
     Dosage: 160/5 MG BID
     Route: 048

REACTIONS (2)
  - DEPRESSION [None]
  - DIABETES MELLITUS [None]
